FAERS Safety Report 14964817 (Version 1)
Quarter: 2018Q2

REPORT INFORMATION
  Report Type: Spontaneous
  Country: US (occurrence: US)
  Receive Date: 20180511
  Receipt Date: 20180511
  Transmission Date: 20180711
  Serious: No
  Sender: FDA-Public Use
  Company Number: None

PATIENT
  Age: 23 Year
  Sex: Female
  Weight: 62.1 kg

DRUGS (3)
  1. ADDERALL ER [Concomitant]
  2. SPIRONOLACTONE TAB 50MG [Suspect]
     Active Substance: SPIRONOLACTONE
     Indication: ACNE
     Dosage: ?          QUANTITY:30 TABLET(S);?
     Route: 048
  3. BIRTH CONTROL (GENERIC FOR YASMIN) [Concomitant]

REACTIONS (3)
  - Alopecia [None]
  - Product substitution issue [None]
  - Drug ineffective [None]

NARRATIVE: CASE EVENT DATE: 20180501
